FAERS Safety Report 5163893-9 (Version None)
Quarter: 2006Q4

REPORT INFORMATION
  Report Type: 
  Country: None (occurrence: None)
  Receive Date: 20061204
  Receipt Date: 20010115
  Transmission Date: 20070319
  Serious: Yes (Hospitalization)
  Sender: FDA-Public Use
  Company Number: 10678738

PATIENT
  Age: 24 Hour
  Sex: Male
  Weight: 3 kg

DRUGS (6)
  1. VIDEX [Suspect]
     Dosage: THERAPY STARTED PREVIOUS TO CONCEPTION STOPPED AT WEEK 7 OF GESTATION
     Route: 064
  2. RETROVIR [Suspect]
     Dosage: ONGOING PREVIOUS TO CONCEPTION, STOPPED WEEK 7 OF GESTATION, RESTARTED WEEK 15 TO DELIVERY
     Route: 064
  3. RETROVIR [Suspect]
     Dosage: 6 WEEKS OF RETROVIR SYRUP AFTER BIRTH
     Route: 048
  4. EPIVIR [Suspect]
     Dosage: THERAPY STARTED WEEK 33 OF GESTATION UNTIL DELIVERY
     Route: 064
  5. EPIVIR [Suspect]
     Dosage: 6 WEEKS OF EPRIVIR SYRUP THERAPY AFTER BIRTH
     Route: 048
  6. BACTRIM [Suspect]
     Route: 064

REACTIONS (11)
  - ALANINE AMINOTRANSFERASE INCREASED [None]
  - AMBLYOPIA [None]
  - ANAEMIA MACROCYTIC [None]
  - ASPARTATE AMINOTRANSFERASE INCREASED [None]
  - BRONCHIOLITIS [None]
  - FEBRILE CONVULSION [None]
  - GASTROENTERITIS [None]
  - HEPATITIS C VIRUS [None]
  - LYMPHADENOPATHY [None]
  - NEUTROPENIA [None]
  - PREGNANCY [None]
